FAERS Safety Report 8537438-7 (Version None)
Quarter: 2012Q3

REPORT INFORMATION
  Report Type: 
  Country: None (occurrence: None)
  Receive Date: 20120725
  Receipt Date: 20120717
  Transmission Date: 20120928
  Serious: Yes (Other)
  Sender: FDA-Public Use
  Company Number: US-PFIZER INC-2012048829

PATIENT
  Sex: Female
  Weight: 70.3 kg

DRUGS (29)
  1. PROTONIX [Concomitant]
     Dosage: 40 MG, 1X/DAY
     Route: 048
  2. DESYREL [Concomitant]
     Dosage: 150MG, 1X/DAY AT BEDTIME, AS NEEDED
     Route: 048
  3. EFFEXOR [Concomitant]
     Dosage: 75MG EVERY DAY
     Route: 048
  4. EFFEXOR XR [Suspect]
     Dosage: 150 MG, 1X/DAY
     Dates: end: 20110101
  5. LYRICA [Suspect]
     Indication: FIBROMYALGIA
     Dosage: 100 MG, 1X/DAY
  6. CREON [Concomitant]
     Indication: PANCREATITIS CHRONIC
     Dosage: 4000 IU, 6X/DAY
  7. ZOVIRAX [Concomitant]
     Dosage: 800MG, 5X/DAY
     Route: 048
  8. COMBIVENT [Concomitant]
     Dosage: 18-103 MCG/ACTUATION, INHALE 2 PUFFS AS DIRECED 4 TIMES DAILY
     Route: 055
  9. CENTRUM [Concomitant]
     Dosage: 3,500-1 1-0.4 UNIT-MG-MG, (1 DF), EVERY DAY
     Route: 048
  10. METHADONE [Suspect]
     Indication: PAIN
     Dosage: 5 MG, 4X/DAY
     Dates: start: 20080101
  11. PROVENTIL GENTLEHALER [Concomitant]
     Dosage: 90 MG/ACTUATION, INHALE 1-2 PUFFS AS DIRECTED EVERY 4 HOURS
     Route: 055
  12. VOLTAREN [Concomitant]
     Dosage: 1%, APPLYING TO AFFECTED AREA FOUR TIMES DAILY
  13. MICRO-K [Concomitant]
     Dosage: 10 MEQ, 2X/DAY
     Route: 048
  14. EFFEXOR [Concomitant]
     Dosage: 150 MBQ, UNK
     Dates: start: 19980101
  15. EFFEXOR XR [Suspect]
     Indication: PAIN
     Dosage: 37.5 MG, 1X/DAY
     Dates: start: 19980101
  16. EFFEXOR XR [Suspect]
     Indication: DEPRESSION
     Dosage: 75 MG, 1X/DAY
  17. VENLAFAXINE [Suspect]
     Indication: DEPRESSION
     Dosage: 150 MG, DAILY
     Dates: start: 20110101
  18. VALIUM [Concomitant]
     Dosage: 10 MG, EVERY 8 HOURS AS NEEDED
     Route: 048
  19. CREON [Concomitant]
     Dosage: 1200 MG, 6X/DAY
     Route: 048
  20. COLACE [Concomitant]
     Dosage: 100MG EVERY DAY
     Route: 048
  21. COZAAR [Concomitant]
     Dosage: 50MG EVERY DAY
     Route: 048
  22. DOLOPHINE HYDROCHLORIDE [Concomitant]
     Dosage: 5 MG, 4X/DAY
     Route: 048
  23. ROBAXIN [Concomitant]
     Indication: MUSCLE RELAXANT THERAPY
     Dosage: 750 MG, 4X/DAY
  24. ROBAXIN [Concomitant]
     Dosage: 750 MG, 6X/DAY
     Route: 048
  25. FLECTOR [Concomitant]
     Dosage: 180 MG, 2X/DAY
  26. ZOFRAN [Concomitant]
     Indication: NAUSEA
     Dosage: 4 MG, 1 TABLET, EVERY 6 HOURS, AS NEEDED
     Route: 048
  27. PREMARIN [Concomitant]
     Indication: HORMONE THERAPY
     Dosage: 1.25 MG, 1X/DAY
     Route: 048
  28. ZOVIRAX [Concomitant]
     Dosage: 1 APPLICATION, 5X/DAY
  29. DOLOPHINE HYDROCHLORIDE [Concomitant]
     Dosage: 5 MG, 3X/DAY
     Route: 048

REACTIONS (5)
  - MEMORY IMPAIRMENT [None]
  - DEPRESSION [None]
  - FIBROMYALGIA [None]
  - DRUG INEFFECTIVE [None]
  - BLOOD CHOLESTEROL INCREASED [None]
